FAERS Safety Report 5960663-6 (Version None)
Quarter: 2008Q4

REPORT INFORMATION
  Report Type: 
  Country: None (occurrence: None)
  Receive Date: 20081120
  Receipt Date: 20080801
  Transmission Date: 20090506
  Serious: No
  Sender: FDA-Public Use
  Company Number: US-ABBOTT-08P-163-0468431-00

PATIENT
  Sex: Female
  Weight: 90.8 kg

DRUGS (1)
  1. BIAXIN [Suspect]
     Indication: SINUSITIS
     Route: 048
     Dates: start: 20080729

REACTIONS (5)
  - ABDOMINAL DISCOMFORT [None]
  - DYSGEUSIA [None]
  - DYSPNOEA [None]
  - INSOMNIA [None]
  - POLLAKIURIA [None]
